FAERS Safety Report 18252371 (Version 2)
Quarter: 2021Q2

REPORT INFORMATION
  Report Type: Spontaneous
  Country: US (occurrence: US)
  Receive Date: 20200910
  Receipt Date: 20210503
  Transmission Date: 20210717
  Serious: No
  Sender: FDA-Public Use
  Company Number: US-FARMAPROD-202006-0886

PATIENT
  Age: 57 Year
  Sex: Male

DRUGS (10)
  1. XIIDRA [Concomitant]
     Active Substance: LIFITEGRAST
     Route: 047
  2. VALTREX [Concomitant]
     Active Substance: VALACYCLOVIR HYDROCHLORIDE
     Route: 048
  3. VITAMINE C [Concomitant]
     Active Substance: ASCORBIC ACID
     Route: 048
     Dates: start: 20200120, end: 20200729
  4. MOXIFLOXACIN. [Concomitant]
     Active Substance: MOXIFLOXACIN
  5. OXERVATE [Suspect]
     Active Substance: CENEGERMIN-BKBJ
     Indication: NEUROTROPHIC KERATOPATHY
     Route: 047
     Dates: start: 20200213, end: 20200420
  6. VORICONAZOLE. [Concomitant]
     Active Substance: VORICONAZOLE
     Route: 048
     Dates: start: 20200207, end: 20200320
  7. ZYMAXID [Concomitant]
     Active Substance: GATIFLOXACIN
     Route: 047
     Dates: start: 20200103, end: 20201203
  8. DOXYCYCLINE. [Concomitant]
     Active Substance: DOXYCYCLINE
     Route: 048
     Dates: start: 20200120
  9. PREDNISOLONE. [Concomitant]
     Active Substance: PREDNISOLONE
     Route: 047
     Dates: start: 20200103, end: 20200729
  10. NATAMYCIN [Concomitant]
     Active Substance: NATAMYCIN
     Route: 047
     Dates: start: 20200203, end: 20200320

REACTIONS (1)
  - Product storage error [Unknown]

NARRATIVE: CASE EVENT DATE: 20200207
